FAERS Safety Report 23878611 (Version 1)
Quarter: 2024Q2

REPORT INFORMATION
  Report Type: Spontaneous
  Country: CN (occurrence: CN)
  Receive Date: 20240521
  Receipt Date: 20240521
  Transmission Date: 20240716
  Serious: Yes (Other)
  Sender: FDA-Public Use
  Company Number: CN-PFIZER INC-PV202400065041

PATIENT
  Age: 10 Year
  Sex: Female

DRUGS (7)
  1. ZITHROMAX [Suspect]
     Active Substance: AZITHROMYCIN DIHYDRATE
     Indication: Tonsillitis
     Dosage: 300 MG, 1X/DAY
     Route: 048
     Dates: start: 20240430, end: 20240502
  2. ZITHROMAX [Suspect]
     Active Substance: AZITHROMYCIN DIHYDRATE
     Indication: Anti-infective therapy
  3. ANDROGRAPHOLIDE [Suspect]
     Active Substance: ANDROGRAPHOLIDE
     Indication: Therapeutic procedure
     Dosage: 150 MG, 1X/DAY
     Route: 041
     Dates: start: 20240429, end: 20240502
  4. CEFUROXIME SODIUM [Suspect]
     Active Substance: CEFUROXIME SODIUM
     Indication: Tonsillitis
     Dosage: 1.5 G, 1X/DAY
     Route: 041
     Dates: start: 20240501, end: 20240502
  5. SODIUM CHLORIDE [Concomitant]
     Active Substance: SODIUM CHLORIDE
     Indication: Vehicle solution use
     Dosage: 100 ML, 1X/DAY
     Route: 041
     Dates: start: 20240501, end: 20240502
  6. CEFTRIAXONE SODIUM [Concomitant]
     Active Substance: CEFTRIAXONE SODIUM
     Indication: Tonsillitis
     Dosage: 0.5 G, 1X/DAY
     Route: 041
     Dates: start: 20240501, end: 20240502
  7. CIMETIDINE [Concomitant]
     Active Substance: CIMETIDINE
     Indication: Tonsillitis
     Dosage: UNK
     Dates: start: 20240429, end: 20240502

REACTIONS (4)
  - Rash pruritic [Recovering/Resolving]
  - Oropharyngeal discomfort [Recovering/Resolving]
  - Cardiac flutter [Recovering/Resolving]
  - Drug ineffective [Unknown]

NARRATIVE: CASE EVENT DATE: 20240501
